FAERS Safety Report 9288561 (Version 1)
Quarter: 2013Q2

REPORT INFORMATION
  Report Type: Spontaneous
  Country: CH (occurrence: CH)
  Receive Date: 20130514
  Receipt Date: 20130514
  Transmission Date: 20140414
  Serious: Yes (Hospitalization)
  Sender: FDA-Public Use
  Company Number: CH-TEVA-404574ISR

PATIENT
  Age: 86 Year
  Sex: Female
  Weight: 51.6 kg

DRUGS (18)
  1. AMLODIPIN-MEPHA [Suspect]
     Dosage: DOSING SCHEME UNKNOWN; SUBSEQUENTLY SUBSTITUTED WITH ZANIDIP (LERCANIDIPINE)
     Route: 048
     Dates: start: 20130110, end: 20130123
  2. CLAMOXYL 1 G SOLUTION FOR INJECTION [Suspect]
     Indication: OSTEOMYELITIS
     Dosage: 4 GRAM DAILY;
     Route: 051
     Dates: start: 20130116, end: 20130123
  3. CLAMOXYL 1 G SOLUTION FOR INJECTION [Suspect]
     Dosage: 2 GRAM DAILY;
     Route: 065
     Dates: start: 20130201, end: 20130204
  4. TAVANIC I.V. 500 SOLUTION FOR INFUSION [Suspect]
     Dosage: 375 MILLIGRAM DAILY;
     Route: 041
     Dates: start: 20130201, end: 20130204
  5. CIPROXIN [Suspect]
     Dosage: ROUTE AND DOSING SCHEME UNKNOWN
     Route: 065
     Dates: start: 20130113, end: 20130116
  6. DALACIN C [Suspect]
     Dosage: ROUTE AND DOSING SCHEME UNKNOWN
     Route: 065
     Dates: start: 20130113, end: 20130116
  7. LIQUEMIN 5000 U-USP SOLUTION FOR INJECTION [Suspect]
     Dosage: DOSING SCHEME UNKNOWN
     Route: 058
     Dates: start: 20130110, end: 20130211
  8. NOVALGIN OBLONG 500 MG TABLETS [Suspect]
     Dosage: DOSING SCHEME UNKNOWN
     Route: 048
     Dates: start: 20130117, end: 20130118
  9. NOVALGIN OBLONG 500 MG TABLETS [Suspect]
     Dosage: DOSING SCHEME UNKNOWN
     Route: 048
     Dates: start: 20130129, end: 20130209
  10. ASPIRIN CARDIO 100 MG FILM-COATED TABLETS [Concomitant]
     Dosage: 100 MILLIGRAM DAILY; CONTINUING
     Route: 048
  11. DANCOR 20 MG TABLETS [Concomitant]
     Dosage: 40 MILLIGRAM DAILY; CONTINUING
     Route: 048
  12. CONCOR 2.5 MG TABLETS [Concomitant]
     Dosage: 2.5 MILLIGRAM DAILY; CONTINUING
     Route: 048
  13. ENATEC 5 MG TABLETS [Concomitant]
     Dosage: 2.5 MILLIGRAM DAILY; CONTINUING
     Route: 048
  14. NITRODERM 50 MG PATCH [Concomitant]
     Dosage: 1 DOSAGE FORMS DAILY; FROM 08:00 TO 20:00; CONTINUING
     Route: 061
  15. SORTIS 20 MG TABLETS [Concomitant]
     Dosage: 20 MILLIGRAM DAILY; CONTINUING
     Route: 048
  16. MADOPAR 100 MG/25 MG TABLETS [Concomitant]
     Dosage: 2 DOSAGE FORMS DAILY; 100 MG LEVODOPA, 25 MG BENSERAZIDE; CONTINUING
     Route: 048
  17. XANAX TABLETS [Concomitant]
     Dosage: .5 MILLIGRAM DAILY; CONTINUING
     Route: 048
  18. CITALOPRAM [Concomitant]
     Dosage: 20 MILLIGRAM DAILY; EXACT DRUG NAME UNKNOWN; CONTINUING
     Route: 048

REACTIONS (3)
  - Cholestatic liver injury [Recovering/Resolving]
  - Hepatic enzyme increased [Recovering/Resolving]
  - Pruritus [Recovered/Resolved]
